FAERS Safety Report 4521609-0 (Version None)
Quarter: 2004Q4

REPORT INFORMATION
  Report Type: 
  Country: None (occurrence: None)
  Receive Date: 20041209
  Receipt Date: 20041126
  Transmission Date: 20050328
  Serious: Yes (Hospitalization)
  Sender: FDA-Public Use
  Company Number: NO-JNJFOC-20041106539

PATIENT
  Sex: Female

DRUGS (6)
  1. REMICADE [Suspect]
     Dosage: 2 INFUSIONS ADMINISTERED
     Route: 042
  2. PREDNISOLONE [Concomitant]
  3. CALCIGRAN [Concomitant]
     Route: 049
  4. CALCIGRAN [Concomitant]
     Route: 049
  5. CALCIGRAN [Concomitant]
     Route: 049
  6. CALCIGRAN [Concomitant]
     Route: 049

REACTIONS (1)
  - ERYTHEMA MULTIFORME [None]
